FAERS Safety Report 5693876-1 (Version None)
Quarter: 2008Q2

REPORT INFORMATION
  Report Type: 
  Country: None (occurrence: None)
  Receive Date: 20080403
  Receipt Date: 20080331
  Transmission Date: 20081010
  Serious: Yes (Death)
  Sender: FDA-Public Use
  Company Number: MX-BRISTOL-MYERS SQUIBB COMPANY-13553102

PATIENT
  Age: 47 Year
  Sex: Female

DRUGS (4)
  1. ABATACEPT [Suspect]
     Indication: RHEUMATOID ARTHRITIS
     Route: 042
     Dates: start: 20051208, end: 20061017
  2. METHOTREXATE TABS [Suspect]
     Route: 048
     Dates: start: 20051208, end: 20061020
  3. FOLIC ACID [Concomitant]
     Dates: start: 20051208, end: 20061020
  4. ACETAMINOPHEN [Concomitant]
     Route: 048
     Dates: start: 20051001, end: 20061020

REACTIONS (1)
  - ACUTE MYOCARDIAL INFARCTION [None]
